FAERS Safety Report 7819553-6 (Version None)
Quarter: 2011Q4

REPORT INFORMATION
  Report Type: 
  Country: None (occurrence: None)
  Receive Date: 20111018
  Receipt Date: 20111004
  Transmission Date: 20120403
  Serious: Yes (Hospitalization)
  Sender: FDA-Public Use
  Company Number: US-MYLANLABS-2011S1020898

PATIENT
  Age: 51 Year
  Sex: Male

DRUGS (5)
  1. METFORMIN HYDROCHLORIDE [Suspect]
     Indication: DIABETES MELLITUS
     Route: 065
  2. METFORMIN HYDROCHLORIDE [Suspect]
     Dosage: TAKEN EVERY 6 HOURS FOR PAIN RELIEF BY MISTAKE
     Route: 065
  3. OXYCODONE/APAP                     /01601701/ [Concomitant]
     Indication: PAIN
  4. METFORMIN HYDROCHLORIDE [Suspect]
     Indication: ACCIDENTAL OVERDOSE
     Route: 065
  5. METFORMIN HYDROCHLORIDE [Suspect]
     Dosage: TAKEN EVERY 6 HOURS FOR PAIN RELIEF BY MISTAKE
     Route: 065

REACTIONS (6)
  - RESPIRATION ABNORMAL [None]
  - HYPOTENSION [None]
  - LACTIC ACIDOSIS [None]
  - RENAL IMPAIRMENT [None]
  - ACCIDENTAL OVERDOSE [None]
  - HYPOGLYCAEMIA [None]
